FAERS Safety Report 5318339-4 (Version None)
Quarter: 2007Q2

REPORT INFORMATION
  Report Type: 
  Country: None (occurrence: None)
  Receive Date: 20070507
  Receipt Date: 20070501
  Transmission Date: 20071010
  Serious: Yes (Disabling)
  Sender: FDA-Public Use
  Company Number: US-BOEHRINGER INGELHEIM PHARMACEUTICALS, INC.-2007-BP-05969BP

PATIENT
  Age: 73 Year
  Sex: Male

DRUGS (2)
  1. FLOMAX [Suspect]
     Indication: BENIGN PROSTATIC HYPERPLASIA
     Route: 048
     Dates: start: 20050101, end: 20070429
  2. FLOMAX [Suspect]
     Route: 048
     Dates: start: 20070430

REACTIONS (4)
  - BLADDER DISORDER [None]
  - HYDRONEPHROSIS [None]
  - INCONTINENCE [None]
  - RENAL IMPAIRMENT [None]
